FAERS Safety Report 14773997 (Version 4)
Quarter: 2018Q2

REPORT INFORMATION
  Report Type: Spontaneous
  Country: IT (occurrence: US)
  Receive Date: 20180418
  Receipt Date: 20180618
  Transmission Date: 20180711
  Serious: Yes (Death, Other)
  Sender: FDA-Public Use
  Company Number: IT-AUROBINDO-AUR-APL-2018-020390

PATIENT

DRUGS (52)
  1. PREGABALIN. [Interacting]
     Active Substance: PREGABALIN
     Dosage: ()
     Route: 065
  2. VALSARTAN. [Interacting]
     Active Substance: VALSARTAN
     Dosage: ()
  3. INFLUENZA VACCINE [Suspect]
     Active Substance: INFLUENZA VIRUS VACCINE
     Dosage: ()
     Route: 065
  4. PARICALCITOL. [Suspect]
     Active Substance: PARICALCITOL
     Dosage: ()
  5. TORSEMIDE. [Interacting]
     Active Substance: TORSEMIDE
     Dosage: ()
  6. TAMSULOSIN [Concomitant]
     Active Substance: TAMSULOSIN
     Dosage: ()
     Route: 065
  7. FISH OIL [Concomitant]
     Active Substance: FISH OIL
     Indication: PRODUCT USED FOR UNKNOWN INDICATION
     Dosage: UNK ()
     Route: 065
  8. SIMVASTATIN. [Suspect]
     Active Substance: SIMVASTATIN
     Dosage: ()
     Route: 065
  9. PARICALCITOL. [Suspect]
     Active Substance: PARICALCITOL
     Indication: PRODUCT USED FOR UNKNOWN INDICATION
     Dosage: ()
  10. HYDROCHLOROTHIAZIDE. [Concomitant]
     Active Substance: HYDROCHLOROTHIAZIDE
     Dosage: ()
  11. CLONIDINE. [Concomitant]
     Active Substance: CLONIDINE
     Dosage: ()
  12. CALCIUM [Concomitant]
     Active Substance: CALCIUM
     Dosage: ()
     Route: 065
  13. SIMVASTATIN. [Suspect]
     Active Substance: SIMVASTATIN
     Indication: IMMUNISATION
     Dosage: ()
     Route: 065
  14. SIMVASTATIN. [Suspect]
     Active Substance: SIMVASTATIN
     Dosage: UNK ()
     Route: 065
  15. TORSEMIDE. [Interacting]
     Active Substance: TORSEMIDE
     Indication: PRODUCT USED FOR UNKNOWN INDICATION
     Dosage: ()
  16. INSULIN [Interacting]
     Active Substance: INSULIN NOS
     Dosage: ()
  17. QUINAPRIL. [Interacting]
     Active Substance: QUINAPRIL
     Indication: PRODUCT USED FOR UNKNOWN INDICATION
     Dosage: ()
  18. HYDROCHLOROTHIAZIDE. [Concomitant]
     Active Substance: HYDROCHLOROTHIAZIDE
     Indication: PRODUCT USED FOR UNKNOWN INDICATION
     Dosage: ()
  19. CLONIDINE. [Concomitant]
     Active Substance: CLONIDINE
     Dosage: UNK ()
     Route: 065
  20. TAMSULOSIN [Concomitant]
     Active Substance: TAMSULOSIN
     Indication: PRODUCT USED FOR UNKNOWN INDICATION
     Dosage: ()
  21. TAMSULOSIN [Concomitant]
     Active Substance: TAMSULOSIN
     Dosage: ()
     Route: 065
  22. TAMSULOSIN [Concomitant]
     Active Substance: TAMSULOSIN
     Dosage: ()
  23. CALCIUM [Concomitant]
     Active Substance: CALCIUM
     Dosage: ()
     Route: 065
  24. CALCIUM [Concomitant]
     Active Substance: CALCIUM
     Dosage: ()
  25. ACETYLSALICYLIC ACID [Suspect]
     Active Substance: ASPIRIN
     Dosage: ()
  26. TORSEMIDE. [Interacting]
     Active Substance: TORSEMIDE
     Dosage: UNK ()
     Route: 065
  27. INSULIN [Interacting]
     Active Substance: INSULIN NOS
     Indication: PRODUCT USED FOR UNKNOWN INDICATION
     Dosage: ()
  28. TAMSULOSIN [Concomitant]
     Active Substance: TAMSULOSIN
     Dosage: ()
  29. CALCIUM [Concomitant]
     Active Substance: CALCIUM
     Indication: PRODUCT USED FOR UNKNOWN INDICATION
     Dosage: ()
  30. GEMFIBROZIL. [Suspect]
     Active Substance: GEMFIBROZIL
     Dosage: ()
  31. HYDROCHLOROTHIAZIDE. [Concomitant]
     Active Substance: HYDROCHLOROTHIAZIDE
     Dosage: ()
  32. CLONIDINE. [Concomitant]
     Active Substance: CLONIDINE
     Dosage: ()
  33. SIMVASTATIN. [Suspect]
     Active Substance: SIMVASTATIN
     Dosage: ()
     Route: 065
  34. INFLUENZA VACCINE [Suspect]
     Active Substance: INFLUENZA VIRUS VACCINE
     Indication: IMMUNISATION
     Dosage: ()
     Route: 065
  35. QUINAPRIL. [Interacting]
     Active Substance: QUINAPRIL
     Dosage: ()
  36. CLONIDINE. [Concomitant]
     Active Substance: CLONIDINE
     Indication: PRODUCT USED FOR UNKNOWN INDICATION
     Dosage: ()
  37. CALCIUM [Concomitant]
     Active Substance: CALCIUM
     Dosage: ()
  38. VALSARTAN. [Interacting]
     Active Substance: VALSARTAN
     Indication: PRODUCT USED FOR UNKNOWN INDICATION
     Dosage: ()
  39. VALSARTAN. [Interacting]
     Active Substance: VALSARTAN
     Dosage: ()
     Route: 065
  40. ACETYLSALICYLIC ACID [Suspect]
     Active Substance: ASPIRIN
     Indication: PRODUCT USED FOR UNKNOWN INDICATION
     Dosage: ()
  41. QUINAPRIL. [Interacting]
     Active Substance: QUINAPRIL
     Dosage: ()
     Route: 065
  42. HYDROCHLOROTHIAZIDE. [Concomitant]
     Active Substance: HYDROCHLOROTHIAZIDE
     Dosage: UNK ()
     Route: 065
  43. HYDROCHLOROTHIAZIDE. [Concomitant]
     Active Substance: HYDROCHLOROTHIAZIDE
     Dosage: UNK ()
     Route: 065
  44. CLONIDINE. [Concomitant]
     Active Substance: CLONIDINE
     Dosage: UNK ()
     Route: 065
  45. SIMVASTATIN. [Suspect]
     Active Substance: SIMVASTATIN
     Indication: PRODUCT USED FOR UNKNOWN INDICATION
     Dosage: UNK ()
     Route: 065
  46. SIMVASTATIN. [Suspect]
     Active Substance: SIMVASTATIN
     Dosage: ()
     Route: 065
  47. PREGABALIN. [Interacting]
     Active Substance: PREGABALIN
     Indication: PRODUCT USED FOR UNKNOWN INDICATION
     Dosage: ()
     Route: 065
  48. INFLUENZA VACCINE [Suspect]
     Active Substance: INFLUENZA VIRUS VACCINE
     Dosage: ()
     Route: 065
  49. INSULIN [Interacting]
     Active Substance: INSULIN NOS
     Dosage: ()
     Route: 065
  50. GEMFIBROZIL. [Suspect]
     Active Substance: GEMFIBROZIL
     Indication: PRODUCT USED FOR UNKNOWN INDICATION
     Dosage: ()
  51. FISH OIL [Concomitant]
     Active Substance: FISH OIL
     Dosage: UNK ()
     Route: 065
  52. FISH OIL [Concomitant]
     Active Substance: FISH OIL
     Dosage: UNK ()
     Route: 065

REACTIONS (19)
  - Rhabdomyolysis [Fatal]
  - Sepsis [Fatal]
  - Guillain-Barre syndrome [Fatal]
  - Mobility decreased [Fatal]
  - Drug interaction [Fatal]
  - Hypoaesthesia [Fatal]
  - Chromaturia [Fatal]
  - Muscular weakness [Fatal]
  - Hypotonia [Fatal]
  - Cardiopulmonary failure [Fatal]
  - Cardiac failure [Unknown]
  - Paralysis [Fatal]
  - Arrhythmia [Fatal]
  - Pneumonia [Fatal]
  - Renal impairment [Fatal]
  - Pain in extremity [Fatal]
  - Supraventricular tachycardia [Fatal]
  - Death [Fatal]
  - Nephropathy [Fatal]
